FAERS Safety Report 6702114-X (Version None)
Quarter: 2010Q2

REPORT INFORMATION
  Report Type: 
  Country: None (occurrence: None)
  Receive Date: 20100426
  Receipt Date: 20100413
  Transmission Date: 20101027
  Serious: Yes (Death, Life-Threatening, Hospitalization)
  Sender: FDA-Public Use
  Company Number: A0606572A

PATIENT
  Sex: Female
  Weight: 73.8456 kg

DRUGS (1)
  1. VOTRIENT TABLET (PAZOPANIB) [Suspect]
     Indication: RENAL CELL CARCINOMA
     Dosage: 800 MG / PER DAY / ORAL
     Route: 048
     Dates: start: 20060504, end: 20060518

REACTIONS (22)
  - ABDOMINAL PAIN [None]
  - ALANINE AMINOTRANSFERASE INCREASED [None]
  - ANAEMIA [None]
  - ASPARTATE AMINOTRANSFERASE INCREASED [None]
  - BACTERIAL INFECTION [None]
  - BLOOD CULTURE POSITIVE [None]
  - CATHETER SITE HAEMATOMA [None]
  - COAGULOPATHY [None]
  - DIVERTICULITIS [None]
  - HAEMODYNAMIC INSTABILITY [None]
  - HEPATIC ENZYME INCREASED [None]
  - HYPOCALCAEMIA [None]
  - HYPOGLYCAEMIA [None]
  - INTESTINAL PERFORATION [None]
  - LACTIC ACIDOSIS [None]
  - LEUKOPENIA [None]
  - METABOLIC ACIDOSIS [None]
  - OLIGURIA [None]
  - RETROPERITONEAL HAEMORRHAGE [None]
  - SEPTIC SHOCK [None]
  - THROMBOCYTOPENIA [None]
  - WOUND HAEMORRHAGE [None]
